FAERS Safety Report 12925260 (Version 2)
Quarter: 2016Q4

REPORT INFORMATION
  Report Type: Spontaneous
  Country: JP (occurrence: JP)
  Receive Date: 20161109
  Receipt Date: 20161122
  Transmission Date: 20170207
  Serious: Yes (Death, Other)
  Sender: FDA-Public Use
  Company Number: PHJP2016JP032067

PATIENT
  Sex: Male

DRUGS (1)
  1. AFINITOR [Suspect]
     Active Substance: EVEROLIMUS
     Indication: RENAL CANCER
     Dosage: 10 MG, QD
     Route: 048
     Dates: start: 201608

REACTIONS (4)
  - Metastases to liver [Unknown]
  - Malignant neoplasm progression [Fatal]
  - Cachexia [Unknown]
  - Metastases to bone [Unknown]

NARRATIVE: CASE EVENT DATE: 201611
